FAERS Safety Report 15067559 (Version 1)
Quarter: 2018Q2

REPORT INFORMATION
  Report Type: Spontaneous
  Country: US (occurrence: US)
  Receive Date: 20180626
  Receipt Date: 20180626
  Transmission Date: 20180711
  Serious: Yes (Other)
  Sender: FDA-Public Use
  Company Number: US-INDIVIOR LIMITED-INDV-111758-2018

PATIENT
  Age: 48 Year
  Sex: Female

DRUGS (6)
  1. ZEGERID                            /00661201/ [Concomitant]
     Active Substance: OMEPRAZOLE
     Indication: GASTRIC DISORDER
     Dosage: UNK
     Route: 065
  2. SUBOXONE [Suspect]
     Active Substance: BUPRENORPHINE HYDROCHLORIDE\NALOXONE HYDROCHLORIDE
     Indication: PAIN
     Dosage: 8 MG, TID
     Route: 060
  3. PHENERGAN [Concomitant]
     Active Substance: PROMETHAZINE HYDROCHLORIDE
     Indication: GASTRIC DISORDER
     Dosage: UNK
     Route: 065
  4. LINZESS [Concomitant]
     Active Substance: LINACLOTIDE
     Indication: IMPAIRED GASTRIC EMPTYING
     Dosage: UNK
     Route: 065
  5. MARINOL                            /00003301/ [Concomitant]
     Active Substance: ALLOPURINOL
     Indication: GASTRIC DISORDER
     Dosage: UNK
     Route: 065
  6. PROTONIX                           /00661201/ [Concomitant]
     Active Substance: OMEPRAZOLE
     Indication: GASTRIC DISORDER
     Dosage: UNK
     Route: 065

REACTIONS (11)
  - Off label use [Unknown]
  - Abdominal pain upper [Unknown]
  - Craniocerebral injury [Unknown]
  - Drug dispensing error [Unknown]
  - Stress [Unknown]
  - Feeling abnormal [Unknown]
  - Seizure [Unknown]
  - Crying [Unknown]
  - Head injury [Unknown]
  - Anger [Unknown]
  - Inappropriate schedule of drug administration [Unknown]
